FAERS Safety Report 10154801 (Version 1)
Quarter: 2014Q2

REPORT INFORMATION
  Report Type: Spontaneous
  Country: GB (occurrence: GB)
  Receive Date: 20140506
  Receipt Date: 20140506
  Transmission Date: 20141212
  Serious: Yes (Other)
  Sender: FDA-Public Use
  Company Number: PHHY2014GB052530

PATIENT
  Age: 21 Month
  Sex: Female

DRUGS (10)
  1. CICLOSPORIN [Suspect]
     Indication: PROPHYLAXIS AGAINST GRAFT VERSUS HOST DISEASE
  2. MYCOPHENOLATE MOFETIL [Suspect]
     Indication: PROPHYLAXIS AGAINST GRAFT VERSUS HOST DISEASE
  3. METHYLPREDNISOLONE [Suspect]
     Dosage: 2 MG/KG, WEEKLY
  4. METHYLPREDNISOLONE [Suspect]
     Dosage: 1 MG/KG, UNK
  5. INFLIXIMAB [Suspect]
     Indication: GRAFT VERSUS HOST DISEASE IN SKIN
  6. ATG//ANTITHYMOCYTE IMMUNOGLOBULIN [Suspect]
     Indication: GRAFT VERSUS HOST DISEASE IN SKIN
     Dosage: 25 MG/KG, UNK
  7. ALEMTUZUMAB [Concomitant]
     Dosage: 1 MG/KG, UNK
  8. TREOSULFAN [Concomitant]
  9. THIOTEPA [Concomitant]
     Dosage: 15 MG/KG, UNK
  10. FLUDARABINE [Concomitant]
     Dosage: 150 MG/M2, UNK

REACTIONS (4)
  - Neurotoxicity [Recovered/Resolved]
  - Toxicity to various agents [Recovered/Resolved]
  - Graft versus host disease in skin [Unknown]
  - Drug ineffective [Unknown]
